FAERS Safety Report 4447859-X (Version None)
Quarter: 2004Q3

REPORT INFORMATION
  Report Type: 
  Country: None (occurrence: None)
  Receive Date: 20040909
  Receipt Date: 20040824
  Transmission Date: 20050211
  Serious: Yes (Death, Hospitalization)
  Sender: FDA-Public Use
  Company Number: 2004SE03436

PATIENT
  Age: 90 Year
  Sex: Male

DRUGS (7)
  1. ROSUVASTATIN [Suspect]
     Indication: CARDIAC FAILURE
     Dosage: 10 MG DAILY PO
     Route: 048
     Dates: start: 20040415, end: 20040417
  2. PLACEBO [Suspect]
     Indication: CARDIAC FAILURE
     Dates: start: 20040323, end: 20040414
  3. LASIX [Concomitant]
  4. ASCAL [Concomitant]
  5. ENALAPRIL [Concomitant]
  6. SELOKEEN [Concomitant]
  7. SINTROM [Concomitant]

REACTIONS (43)
  - BILE DUCT OBSTRUCTION [None]
  - BILIARY TRACT DISORDER [None]
  - BIOPSY INTESTINE ABNORMAL [None]
  - BIOPSY LIVER ABNORMAL [None]
  - BLOOD ALBUMIN DECREASED [None]
  - BLOOD CREATINE INCREASED [None]
  - BLOOD IMMUNOGLOBULIN A INCREASED [None]
  - BLOOD PRESSURE DIASTOLIC DECREASED [None]
  - CARDIAC FAILURE CHRONIC [None]
  - CARDIAC MURMUR [None]
  - CHOLAEMIA [None]
  - CHOLANGITIS [None]
  - CHOLELITHIASIS [None]
  - CHOLESTASIS [None]
  - CIRCULATORY COLLAPSE [None]
  - CONTUSION [None]
  - CYTOMEGALOVIRUS ANTIBODY POSITIVE [None]
  - DEHYDRATION [None]
  - DIZZINESS [None]
  - DYSPHAGIA [None]
  - EATING DISORDER [None]
  - EPISTAXIS [None]
  - EPSTEIN-BARR VIRUS ANTIGEN POSITIVE [None]
  - EPSTEIN-BARR VIRUS INFECTION [None]
  - FATIGUE [None]
  - GALLBLADDER ENLARGEMENT [None]
  - HAEMOGLOBIN DECREASED [None]
  - HEPATIC CONGESTION [None]
  - HEPATIC VEIN OCCLUSION [None]
  - HEPATITIS A ANTIBODY POSITIVE [None]
  - HEPATITIS TOXIC [None]
  - HYDROCHOLECYSTIS [None]
  - HYPERHIDROSIS [None]
  - INTERNATIONAL NORMALISED RATIO INCREASED [None]
  - JAUNDICE [None]
  - LIVER DISORDER [None]
  - NAUSEA [None]
  - PALLOR [None]
  - PLEURAL EFFUSION [None]
  - PRURITUS [None]
  - RASH ERYTHEMATOUS [None]
  - THIRST [None]
  - WEIGHT DECREASED [None]
